FAERS Safety Report 7743622-2 (Version None)
Quarter: 2011Q3

REPORT INFORMATION
  Report Type: 
  Country: None (occurrence: None)
  Receive Date: 20110819
  Receipt Date: 20110615
  Transmission Date: 20111222
  Serious: No
  Sender: FDA-Public Use
  Company Number: 035447

PATIENT
  Sex: Female

DRUGS (4)
  1. KEPPRA [Concomitant]
  2. ELAVIL [Concomitant]
  3. CLONAZEPAM [Concomitant]
  4. LACOSAMIDE [Suspect]

REACTIONS (2)
  - DIPLOPIA [None]
  - PRURITUS [None]
